FAERS Safety Report 4980776-5 (Version None)
Quarter: 2006Q2

REPORT INFORMATION
  Report Type: 
  Country: None (occurrence: None)
  Receive Date: 20060424
  Receipt Date: 20060411
  Transmission Date: 20061013
  Serious: Yes (Other)
  Sender: FDA-Public Use
  Company Number: GB-AVENTIS-200612193EU

PATIENT
  Sex: Female

DRUGS (3)
  1. ENOXAPARIN SODIUM [Suspect]
     Indication: ANTIPHOSPHOLIPID SYNDROME
  2. ASPIRIN [Concomitant]
     Indication: ANTIPHOSPHOLIPID SYNDROME
  3. UNKNOWN DRUG [Concomitant]

REACTIONS (8)
  - ABORTION SPONTANEOUS [None]
  - CAESAREAN SECTION [None]
  - DRUG EXPOSURE DURING PREGNANCY [None]
  - INJECTION SITE BRUISING [None]
  - PLACENTAL INFARCTION [None]
  - PREGNANCY [None]
  - PREMATURE LABOUR [None]
  - STILLBIRTH [None]
